FAERS Safety Report 7706182-8 (Version None)
Quarter: 2011Q3

REPORT INFORMATION
  Report Type: 
  Country: None (occurrence: None)
  Receive Date: 20110824
  Receipt Date: 20110812
  Transmission Date: 20111222
  Serious: Yes (Hospitalization, Other)
  Sender: FDA-Public Use
  Company Number: US-ELI_LILLY_AND_COMPANY-US201108005384

PATIENT
  Sex: Male
  Weight: 58.957 kg

DRUGS (7)
  1. ASPIRIN [Concomitant]
  2. CARVEDILOL [Concomitant]
  3. EFFIENT [Suspect]
     Indication: STENT PLACEMENT
     Dosage: 10 MG, UNKNOWN
     Dates: start: 20110710
  4. JESTRYL [Concomitant]
  5. LIPITOR [Concomitant]
  6. COREG [Concomitant]
  7. LISINOPRIL [Concomitant]

REACTIONS (6)
  - DEHYDRATION [None]
  - VOMITING [None]
  - WEIGHT DECREASED [None]
  - CORONARY ARTERIAL STENT INSERTION [None]
  - ERUCTATION [None]
  - ABDOMINAL PAIN UPPER [None]
